FAERS Safety Report 20472649 (Version 1)
Quarter: 2022Q1

REPORT INFORMATION
  Report Type: Spontaneous
  Country: US (occurrence: US)
  Receive Date: 20220215
  Receipt Date: 20220215
  Transmission Date: 20220423
  Serious: No
  Sender: FDA-Public Use
  Company Number: US-009507513-2201USA007367

PATIENT
  Age: 44 Year
  Sex: Female

DRUGS (3)
  1. STROMECTOL [Suspect]
     Active Substance: IVERMECTIN
     Indication: Strongyloidiasis
     Route: 048
  2. STROMECTOL [Suspect]
     Active Substance: IVERMECTIN
     Indication: Prophylaxis
  3. ALBENDAZOLE [Concomitant]
     Active Substance: ALBENDAZOLE
     Indication: Strongyloidiasis

REACTIONS (1)
  - Product use in unapproved indication [Unknown]
